FAERS Safety Report 24714595 (Version 1)
Quarter: 2024Q4

REPORT INFORMATION
  Report Type: Spontaneous
  Country: US (occurrence: US)
  Receive Date: 20241209
  Receipt Date: 20241209
  Transmission Date: 20250114
  Serious: No
  Sender: RANBAXY
  Company Number: US-SUN PHARMACEUTICAL INDUSTRIES LTD-2024R1-480358

PATIENT
  Sex: Female

DRUGS (2)
  1. LISDEXAMFETAMINE [Suspect]
     Active Substance: LISDEXAMFETAMINE
     Indication: Attention deficit hyperactivity disorder
     Dosage: 30 MILLIGRAM
     Route: 048
  2. Virtech [Concomitant]
     Indication: Product used for unknown indication
     Route: 065

REACTIONS (1)
  - Gastrointestinal disorder [Unknown]
